FAERS Safety Report 6947372-1 (Version None)
Quarter: 2010Q3

REPORT INFORMATION
  Report Type: 
  Country: None (occurrence: None)
  Receive Date: 20100827
  Receipt Date: 20100819
  Transmission Date: 20110219
  Serious: Yes (Hospitalization)
  Sender: FDA-Public Use
  Company Number: US-AMGEN-KDL432736

PATIENT
  Sex: Female

DRUGS (1)
  1. ENBREL [Suspect]
     Indication: ANKYLOSING SPONDYLITIS
     Route: 058
     Dates: end: 20100808

REACTIONS (4)
  - ARTHRITIS [None]
  - COLITIS [None]
  - KNEE ARTHROPLASTY [None]
  - TOOTH DISORDER [None]
